FAERS Safety Report 6107431-2 (Version None)
Quarter: 2009Q1

REPORT INFORMATION
  Report Type: 
  Country: None (occurrence: None)
  Receive Date: 20090302
  Receipt Date: 20090130
  Transmission Date: 20090719
  Serious: Yes (Hospitalization)
  Sender: FDA-Public Use
  Company Number: FLCT20090010

PATIENT
  Age: 41 Year
  Sex: Female

DRUGS (1)
  1. FLECTOR [Suspect]
     Indication: DRUG USE FOR UNKNOWN INDICATION
     Dosage: 1 PLASTER, 1 IN ONCE, TOPICAL
     Route: 061
     Dates: start: 20080907

REACTIONS (1)
  - CEREBROVASCULAR ACCIDENT [None]
